FAERS Safety Report 19093182 (Version 2)
Quarter: 2021Q2

REPORT INFORMATION
  Report Type: Report from Study
  Country: ES (occurrence: ES)
  Receive Date: 20210405
  Receipt Date: 20210420
  Transmission Date: 20210717
  Serious: Yes (Hospitalization, Other)
  Sender: FDA-Public Use
  Company Number: ES-GLAXOSMITHKLINE-ES2021GSK072410

PATIENT
  Age: 67 Year
  Sex: Female
  Weight: 76.4 kg

DRUGS (2)
  1. BELANTAMAB MAFODOTIN. [Suspect]
     Active Substance: BELANTAMAB MAFODOTIN
     Indication: PLASMA CELL MYELOMA
     Dosage: UNK, CYC
     Route: 042
  2. PREDNISONE. [Concomitant]
     Active Substance: PREDNISONE
     Indication: PNEUMONITIS
     Dosage: 30 MG, QD
     Route: 048
     Dates: start: 202102

REACTIONS (1)
  - Septic shock [Recovered/Resolved]

NARRATIVE: CASE EVENT DATE: 20210326
